FAERS Safety Report 14517511 (Version 1)
Quarter: 2018Q1

REPORT INFORMATION
  Report Type: Other
  Country: FR (occurrence: FR)
  Receive Date: 20180212
  Receipt Date: 20180212
  Transmission Date: 20180509
  Serious: Yes (Life-Threatening, Hospitalization, Other)
  Sender: FDA-Public Use
  Company Number: FR-ASTELLAS-2018US007615

PATIENT
  Age: 1 Month
  Sex: Female
  Weight: 3 kg

DRUGS (3)
  1. PROGRAF [Suspect]
     Active Substance: TACROLIMUS\TACROLIMUS ANHYDROUS
     Indication: LIVER TRANSPLANT
     Route: 064
     Dates: start: 201703, end: 20171209
  2. INEXIUM                            /01479302/ [Concomitant]
     Active Substance: ESOMEPRAZOLE MAGNESIUM
     Indication: GASTRIC ULCER HAEMORRHAGE
     Route: 064
     Dates: start: 201703, end: 20171209
  3. CORTANCYL [Concomitant]
     Active Substance: PREDNISONE
     Indication: CROHN^S DISEASE
     Route: 064
     Dates: start: 201703, end: 20171209

REACTIONS (1)
  - Neuroblastoma [Not Recovered/Not Resolved]

NARRATIVE: CASE EVENT DATE: 20180110
